FAERS Safety Report 12955590 (Version 1)
Quarter: 2016Q4

REPORT INFORMATION
  Report Type: Spontaneous
  Country: DE (occurrence: DE)
  Receive Date: 20161118
  Receipt Date: 20161118
  Transmission Date: 20170207
  Serious: Yes (Other)
  Sender: FDA-Public Use
  Company Number: DE-AMGEN-DEUSP2016155682

PATIENT
  Age: 27 Year
  Sex: Female
  Weight: 56 kg

DRUGS (6)
  1. MIRCERA [Concomitant]
     Active Substance: METHOXY POLYETHYLENE GLYCOL-EPOETIN BETA
     Dosage: 120 MCG, Q2WK
     Route: 065
  2. MIMPARA [Suspect]
     Active Substance: CINACALCET HYDROCHLORIDE
     Indication: PRODUCT USED FOR UNKNOWN INDICATION
     Dosage: 30 MG, QD
     Route: 065
  3. OSVAREN [Concomitant]
     Active Substance: CALCIUM ACETATE\MAGNESIUM CARBONATE
     Dosage: UNK UNK, TID (2-2-2)
  4. L THYROXIN [Concomitant]
     Active Substance: LEVOTHYROXINE SODIUM
     Dosage: 75 MCG, QD
     Route: 065
  5. METOSUCCINAT [Concomitant]
     Dosage: 47.5 MCG, QD
     Route: 065
  6. CALCITRIOL. [Concomitant]
     Active Substance: CALCITRIOL
     Dosage: 0.25 MCG, QD
     Route: 065

REACTIONS (5)
  - Nausea [Unknown]
  - Blood calcium decreased [Unknown]
  - Discomfort [Unknown]
  - Blood parathyroid hormone increased [Not Recovered/Not Resolved]
  - Malaise [Unknown]

NARRATIVE: CASE EVENT DATE: 2013
